FAERS Safety Report 16897097 (Version 1)
Quarter: 2019Q4

REPORT INFORMATION
  Report Type: Spontaneous
  Country: PT (occurrence: PT)
  Receive Date: 20191009
  Receipt Date: 20191009
  Transmission Date: 20200122
  Serious: Yes (Life-Threatening, Hospitalization, Other)
  Sender: FDA-Public Use
  Company Number: PT-CHEPLA-C20192450

PATIENT
  Age: 48 Year
  Sex: Female
  Weight: 77 kg

DRUGS (13)
  1. TOPIRAMATE. [Interacting]
     Active Substance: TOPIRAMATE
     Indication: WEIGHT DECREASED
     Dosage: 10 MG BID
     Route: 048
     Dates: start: 201708, end: 201804
  2. METFORMIN [Interacting]
     Active Substance: METFORMIN HYDROCHLORIDE
     Indication: WEIGHT DECREASED
     Dosage: 200MG
     Route: 048
     Dates: start: 201708, end: 201804
  3. PHENOLPHTHALEIN [Interacting]
     Active Substance: PHENOLPHTHALEIN
     Indication: WEIGHT DECREASED
     Dosage: 80 MG B.I.D.
     Route: 048
     Dates: start: 201708, end: 201804
  4. CHROMIUM PICOLINATE [Interacting]
     Active Substance: CHROMIUM PICOLINATE
     Indication: WEIGHT DECREASED
     Dosage: 200 MCG BID
     Route: 048
     Dates: start: 201708, end: 201804
  5. MINULET [Interacting]
     Active Substance: ETHINYL ESTRADIOL\GESTODENE
     Indication: CONTRACEPTION
     Route: 048
     Dates: start: 201711, end: 201804
  6. ASIAN SPARKLE (CENTELLA ASIATICA) [Interacting]
     Active Substance: CENTELLA ASIATICA\HERBALS
     Indication: WEIGHT DECREASED
     Dosage: 200 MG BID
     Route: 048
     Dates: start: 201708, end: 201804
  7. ORLISTAT. [Suspect]
     Active Substance: ORLISTAT
     Indication: WEIGHT DECREASED
     Dosage: 50 MG B.I.D.
     Route: 048
     Dates: start: 201708, end: 201804
  8. CASCARA SAGRADA [Interacting]
     Active Substance: FRANGULA PURSHIANA BARK
     Indication: WEIGHT DECREASED
     Dosage: 100
     Route: 048
     Dates: start: 201708, end: 201804
  9. FUROSEMIDE. [Interacting]
     Active Substance: FUROSEMIDE
     Indication: WEIGHT DECREASED
     Dosage: 40 MG B.I.D.
     Route: 048
     Dates: start: 201708, end: 201804
  10. SENNA [Interacting]
     Active Substance: SENNA LEAF\SENNOSIDES\SENNOSIDES A AND B
     Route: 065
  11. CHLORDIAZEPOXIDE. [Interacting]
     Active Substance: CHLORDIAZEPOXIDE
     Indication: WEIGHT DECREASED
     Dosage: 10MG
     Route: 048
     Dates: start: 201708, end: 201804
  12. BUPROPION. [Interacting]
     Active Substance: BUPROPION
     Indication: WEIGHT DECREASED
     Dosage: 100 MG B.I.D.
     Route: 048
     Dates: start: 201708, end: 201804
  13. FLECAINIDE [Concomitant]
     Active Substance: FLECAINIDE
     Indication: VENTRICULAR EXTRASYSTOLES
     Route: 048
     Dates: start: 201605

REACTIONS (5)
  - Cerebral venous thrombosis [Recovering/Resolving]
  - Psychomotor retardation [Recovering/Resolving]
  - Headache [Recovering/Resolving]
  - Thalamic infarction [Not Recovered/Not Resolved]
  - Fatigue [Recovering/Resolving]

NARRATIVE: CASE EVENT DATE: 20180404
